FAERS Safety Report 23796601 (Version 1)
Quarter: 2024Q2

REPORT INFORMATION
  Report Type: Spontaneous
  Country: DE (occurrence: DE)
  Receive Date: 20240430
  Receipt Date: 20240430
  Transmission Date: 20240715
  Serious: Yes (Hospitalization)
  Sender: FDA-Public Use
  Company Number: None

PATIENT
  Age: 70 Year
  Sex: Female

DRUGS (2)
  1. NOVORAPID [Suspect]
     Active Substance: INSULIN ASPART
     Indication: Type 1 diabetes mellitus
     Dosage: 15-20 IU
     Dates: start: 202403
  2. NOVORAPID [Suspect]
     Active Substance: INSULIN ASPART
     Dosage: INCREASED TO 40 IU AND ADDITIONALLY INJECTED WHEN FREESTYLE 3 GAVE AN ALARM

REACTIONS (7)
  - Blood glucose increased [Unknown]
  - Chest pain [Unknown]
  - Dyspnoea [Unknown]
  - Dyspnoea [Unknown]
  - Somnolence [Unknown]
  - Insomnia [Unknown]
  - Drug ineffective [Unknown]

NARRATIVE: CASE EVENT DATE: 20240301
